FAERS Safety Report 10075367 (Version 3)
Quarter: 2014Q2

REPORT INFORMATION
  Report Type: Spontaneous
  Country: EC (occurrence: EC)
  Receive Date: 20140414
  Receipt Date: 20140523
  Transmission Date: 20141212
  Serious: Yes (Hospitalization, Disabling, Other)
  Sender: FDA-Public Use
  Company Number: EC-ROCHE-1383333

PATIENT
  Age: 74 Year
  Sex: Female

DRUGS (4)
  1. LUCENTIS [Suspect]
     Indication: AGE-RELATED MACULAR DEGENERATION
     Route: 050
     Dates: start: 20130704
  2. EUTIROX [Concomitant]
  3. LUTEIN [Concomitant]
  4. TRYPTANOL [Concomitant]

REACTIONS (6)
  - Stress cardiomyopathy [Recovered/Resolved]
  - Tachyarrhythmia [Recovered/Resolved]
  - Tachycardia [Recovered/Resolved]
  - Fatigue [Recovered/Resolved]
  - Malaise [Recovered/Resolved]
  - Dyspnoea [Recovered/Resolved]
